FAERS Safety Report 4374274-X (Version None)
Quarter: 2004Q2

REPORT INFORMATION
  Report Type: 
  Country: None (occurrence: None)
  Receive Date: 20040602
  Receipt Date: 20040317
  Transmission Date: 20050107
  Serious: No
  Sender: FDA-Public Use
  Company Number: 200410979BWH

PATIENT
  Age: 84 Year
  Sex: Male

DRUGS (6)
  1. LEVITRA [Suspect]
     Indication: ERECTILE DYSFUNCTION
     Dosage: 10 MG, OW, ORAL
     Route: 048
     Dates: start: 20031205
  2. VIAGRA [Concomitant]
  3. ALLOPURINOL [Concomitant]
  4. AVAPRO [Concomitant]
  5. ZAROXOLYN [Concomitant]
  6. ATENOLOL [Concomitant]

REACTIONS (4)
  - DRUG INEFFECTIVE [None]
  - ERECTILE DYSFUNCTION [None]
  - PENIS DISORDER [None]
  - SPONTANEOUS PENILE ERECTION [None]
